FAERS Safety Report 5197807-2 (Version None)
Quarter: 2006Q4

REPORT INFORMATION
  Report Type: 
  Country: None (occurrence: None)
  Receive Date: 20061228
  Receipt Date: 20061218
  Transmission Date: 20070319
  Serious: Yes (Hospitalization, Other)
  Sender: FDA-Public Use
  Company Number: 2006SP008588

PATIENT
  Sex: Male

DRUGS (2)
  1. PEGETRON (PEGINTERFERON ALFA-2B W/RIBAVIRIN) (PEGYLATED INTERFERON ALF [Suspect]
     Indication: HEPATITIS C
     Dosage: SEE IMAGE
     Route: 058
  2. . [Concomitant]

REACTIONS (2)
  - CARDIAC ARREST [None]
  - PSYCHOTIC DISORDER [None]
